FAERS Safety Report 22251113 (Version 1)
Quarter: 2023Q2

REPORT INFORMATION
  Report Type: Spontaneous
  Country: GB (occurrence: GB)
  Receive Date: 20230425
  Receipt Date: 20230425
  Transmission Date: 20230722
  Serious: Yes (Other)
  Sender: FDA-Public Use
  Company Number: GB-009507513-2304GBR008418

PATIENT
  Sex: Male

DRUGS (2)
  1. PIFELTRO [Suspect]
     Active Substance: DORAVIRINE
     Dosage: 100 MILLIGRAM
     Route: 048
  2. ABACAVIR SULFATE\LAMIVUDINE [Suspect]
     Active Substance: ABACAVIR SULFATE\LAMIVUDINE
     Indication: Product used for unknown indication
     Dosage: 300 MILLIGRAM OD
     Route: 048

REACTIONS (3)
  - Bipolar disorder [Unknown]
  - Mania [Unknown]
  - Malaise [Unknown]
